FAERS Safety Report 9384756 (Version 2)
Quarter: 2013Q3

REPORT INFORMATION
  Report Type: Spontaneous
  Country: CN (occurrence: CN)
  Receive Date: 20130705
  Receipt Date: 20130710
  Transmission Date: 20140515
  Serious: Yes (Hospitalization, Other)
  Sender: FDA-Public Use
  Company Number: CN-PFIZER INC-2013195912

PATIENT
  Age: 49 Year
  Sex: Male
  Weight: 65 kg

DRUGS (12)
  1. ZOLOFT [Suspect]
     Indication: OBSESSIVE-COMPULSIVE DISORDER
     Dosage: 50 MG, 1X/DAY
     Route: 048
     Dates: start: 20120717, end: 2012
  2. ZOLOFT [Suspect]
     Dosage: 200 MG, 1X/DAY
     Route: 048
     Dates: start: 2012, end: 2012
  3. ZOLOFT [Suspect]
     Dosage: UNK
     Route: 048
     Dates: start: 2012, end: 20120812
  4. ZIPRASIDONE HCL [Suspect]
     Dosage: 20 MG, 1X/DAY
     Dates: start: 2012, end: 2012
  5. OLANZAPINE [Suspect]
     Dosage: UNK
     Dates: end: 2012
  6. FLUOXETINE [Suspect]
     Dosage: 20 MG, 1X/DAY
     Dates: start: 20120811, end: 20120816
  7. FLUOXETINE [Suspect]
     Dosage: 40 MG, 1X/DAY
     Dates: start: 20120817, end: 20120820
  8. MAGNESIUM VALPROATE [Concomitant]
     Dosage: 750 MG, 1X/DAY
     Dates: start: 2012, end: 2012
  9. QUETIAPINE FUMARATE [Concomitant]
     Dosage: 50 MG, 1X/DAY AT NIGHT
     Dates: start: 2012, end: 2012
  10. QUETIAPINE FUMARATE [Concomitant]
     Dosage: 100 MG, 1X/DAY
     Dates: start: 2012, end: 2012
  11. QUETIAPINE FUMARATE [Concomitant]
     Dosage: 50 MG, 1X/DAY AT NIGHT
     Dates: start: 2012, end: 2012
  12. DULOXETINE HYDROCHLORIDE [Concomitant]
     Dosage: 30 MG, 1X/DAY
     Dates: start: 20120820

REACTIONS (7)
  - Oedema peripheral [Recovering/Resolving]
  - Angioedema [Recovering/Resolving]
  - Eyelid oedema [Recovering/Resolving]
  - Gait disturbance [Unknown]
  - Dry mouth [Unknown]
  - Fatigue [Unknown]
  - Polydipsia [Unknown]
